FAERS Safety Report 5446626-8 (Version None)
Quarter: 2007Q3

REPORT INFORMATION
  Report Type: 
  Country: None (occurrence: None)
  Receive Date: 20070907
  Receipt Date: 20070814
  Transmission Date: 20080115
  Serious: Yes (Other)
  Sender: FDA-Public Use
  Company Number: US-PFIZER INC-2007058088

PATIENT
  Sex: Female
  Weight: 90.7 kg

DRUGS (12)
  1. LYRICA [Suspect]
     Indication: NEURALGIA
     Route: 048
  2. CLOPIDOGREL [Concomitant]
  3. LISINOPRIL [Concomitant]
  4. HYDROCHLOROTHIAZIDE [Concomitant]
  5. ASPIRIN [Concomitant]
  6. LIPITOR [Concomitant]
  7. CLONIDINE [Concomitant]
  8. LEXAPRO [Concomitant]
  9. LAXATIVES [Concomitant]
  10. CYMBALTA [Concomitant]
  11. GABAPENTIN [Concomitant]
     Indication: PAIN
  12. LORTAB [Concomitant]
     Indication: PAIN
     Dosage: TEXT:7.5 EVERY 4 TO 6 HOURS

REACTIONS (4)
  - BACK PAIN [None]
  - DRUG INEFFECTIVE [None]
  - NEURALGIA [None]
  - SOMNOLENCE [None]
